FAERS Safety Report 4418081-8 (Version None)
Quarter: 2004Q3

REPORT INFORMATION
  Report Type: 
  Country: None (occurrence: None)
  Receive Date: 20040803
  Receipt Date: 20040722
  Transmission Date: 20050211
  Serious: Yes (Death)
  Sender: FDA-Public Use
  Company Number: T01-USA-01472-01

PATIENT
  Age: 2 Day
  Sex: Female
  Weight: 0.712 kg

DRUGS (2)
  1. INFASURF (UNBLINDED THERAPY) (CALFACTANT) [Suspect]
     Indication: NEONATAL RESPIRATORY DISTRESS SYNDROME
     Dosage: 1 QD TRACH
     Dates: start: 20010704, end: 20010705
  2. INDOMETHACIN 25MG CAP [Concomitant]

REACTIONS (14)
  - ACTIVATED PARTIAL THROMBOPLASTIN TIME PROLONGED [None]
  - BLOOD CULTURE POSITIVE [None]
  - CANDIDIASIS [None]
  - CARDIOPULMONARY FAILURE [None]
  - CEREBRAL VENTRICLE DILATATION [None]
  - FIBRIN D DIMER DECREASED [None]
  - HAEMATOCRIT DECREASED [None]
  - INTRAVENTRICULAR HAEMORRHAGE NEONATAL [None]
  - NEONATAL DISORDER [None]
  - NEONATAL RESPIRATORY FAILURE [None]
  - PNEUMOTHORAX [None]
  - PROTHROMBIN TIME PROLONGED [None]
  - PULMONARY HAEMORRHAGE [None]
  - PULMONARY INTERSTITIAL EMPHYSEMA SYNDROME [None]
